FAERS Safety Report 8131860-9 (Version None)
Quarter: 2012Q1

REPORT INFORMATION
  Report Type: 
  Country: None (occurrence: None)
  Receive Date: 20120213
  Receipt Date: 20120206
  Transmission Date: 20120608
  Serious: Yes (Hospitalization, Other)
  Sender: FDA-Public Use
  Company Number: US-BAYER-2012-012566

PATIENT
  Age: 47 Year
  Sex: Male

DRUGS (2)
  1. ASPIRIN [Suspect]
     Indication: CARDIAC DISORDER
     Dosage: DAILY DOSE 325 MG
     Dates: start: 19970101
  2. PLAVIX [Suspect]
     Indication: CARDIAC DISORDER
     Dosage: DAILY DOSE 75 MG
     Dates: start: 19970101, end: 20070101

REACTIONS (7)
  - ARRHYTHMIA [None]
  - HAEMATEMESIS [None]
  - HYPOVOLAEMIA [None]
  - ABDOMINAL PAIN UPPER [None]
  - LOSS OF CONSCIOUSNESS [None]
  - ABDOMINAL DISTENSION [None]
  - RECTAL HAEMORRHAGE [None]
